FAERS Safety Report 4878378-4 (Version None)
Quarter: 2005Q4

REPORT INFORMATION
  Report Type: 
  Country: None (occurrence: None)
  Receive Date: 20051209
  Receipt Date: 20050913
  Transmission Date: 20060501
  Serious: No
  Sender: FDA-Public Use
  Company Number: COV2-2005-00415

PATIENT
  Age: 57 Year
  Sex: Male
  Weight: 78.9 kg

DRUGS (1)
  1. FOSRENOL(LANTHANUM CARBONATE) FOSRENOL(LANTHANUM CARBONATE) TABLET CHE [Suspect]
     Indication: HYPERPHOSPHATAEMIA
     Dosage: MG, 3X/DAY:TID , ORAL
     Route: 048
     Dates: start: 20050427

REACTIONS (1)
  - PERITONITIS [None]
